FAERS Safety Report 5774184-7 (Version None)
Quarter: 2008Q2

REPORT INFORMATION
  Report Type: 
  Country: None (occurrence: None)
  Receive Date: 20080616
  Receipt Date: 20080605
  Transmission Date: 20081010
  Serious: Yes (Other)
  Sender: FDA-Public Use
  Company Number: US-BAYER-200810864NA

PATIENT
  Age: 44 Year
  Sex: Male

DRUGS (6)
  1. MAGNEVIST [Suspect]
     Indication: NUCLEAR MAGNETIC RESONANCE IMAGING
     Dosage: AS USED: 20 ML  UNIT DOSE: 15 ML
     Route: 042
     Dates: start: 20071229, end: 20071229
  2. EFFEXOR [Concomitant]
  3. SANCTURA [Concomitant]
  4. METHYLPHENIDATE HCL [Concomitant]
  5. MIRTAZAPINE [Concomitant]
  6. PREDNISONE TAB [Concomitant]
     Indication: PREMEDICATION
     Dates: start: 20071228, end: 20071229

REACTIONS (7)
  - ANGIOEDEMA [None]
  - BRONCHOSPASM [None]
  - COUGH [None]
  - LARYNGEAL OEDEMA [None]
  - NASAL CONGESTION [None]
  - SNEEZING [None]
  - SWELLING FACE [None]
